FAERS Safety Report 5824556-7 (Version None)
Quarter: 2008Q3

REPORT INFORMATION
  Report Type: 
  Country: None (occurrence: None)
  Receive Date: 20080728
  Receipt Date: 20080724
  Transmission Date: 20090109
  Serious: Yes (Other)
  Sender: FDA-Public Use
  Company Number: FR-MERCK-0807FRA00093

PATIENT
  Age: 64 Year
  Sex: Male

DRUGS (14)
  1. FOSAMAX [Suspect]
     Route: 048
     Dates: start: 20080605
  2. VALPROATE SODIUM [Suspect]
     Indication: CONVULSION PROPHYLAXIS
     Route: 048
     Dates: end: 20080608
  3. VALPROATE SODIUM [Suspect]
     Route: 048
     Dates: start: 20080609, end: 20080630
  4. VALPROATE SODIUM [Suspect]
     Route: 048
     Dates: start: 20080701
  5. TIAPRIDE [Suspect]
     Route: 051
     Dates: start: 20080408
  6. ACETAMINOPHEN [Suspect]
     Route: 048
     Dates: start: 20080409
  7. RISPERIDONE [Suspect]
     Route: 048
     Dates: start: 20080408
  8. MEPROBAMATE [Suspect]
     Route: 048
     Dates: start: 20080425
  9. CLONAZEPAM [Suspect]
     Route: 048
     Dates: start: 20080512
  10. CYPROTERONE ACETATE [Suspect]
     Route: 048
     Dates: start: 20080515
  11. POLYETHYLENE GLYCOL 3350 AND POTASSIUM CHLORIDE AND SODIUM BICARBONATE [Concomitant]
     Route: 048
     Dates: start: 20080410
  12. FOLIC ACID [Concomitant]
     Route: 048
     Dates: start: 20080429
  13. CEFTRIAXONE SODIUM [Concomitant]
     Route: 065
     Dates: start: 20080612
  14. KETOPROFEN [Concomitant]
     Route: 065
     Dates: start: 20080619

REACTIONS (3)
  - CONVULSION [None]
  - DRUG INEFFECTIVE [None]
  - DRUG INTERACTION [None]
